FAERS Safety Report 8390390-X (Version None)
Quarter: 2012Q2

REPORT INFORMATION
  Report Type: 
  Country: None (occurrence: None)
  Receive Date: 20120529
  Receipt Date: 20120522
  Transmission Date: 20120825
  Serious: Yes (Death)
  Sender: FDA-Public Use
  Company Number: US-JNJFOC-20120517801

PATIENT
  Age: 3 Decade
  Sex: Male

DRUGS (2)
  1. ROLAIDS [Suspect]
     Indication: DYSPEPSIA
     Dosage: ALL DAY LONG
     Route: 048
  2. CALCIUM CARBONATE [Suspect]
     Indication: DYSPEPSIA
     Dosage: ALL DAY LONG
     Route: 048

REACTIONS (3)
  - LYMPHOMA [None]
  - DRUG ADMINISTRATION ERROR [None]
  - RENAL FAILURE [None]
